FAERS Safety Report 8780834 (Version 3)
Quarter: 2012Q4

REPORT INFORMATION
  Report Type: 
  Country: US (occurrence: US)
  Receive Date: 20120913
  Receipt Date: 20121108
  Transmission Date: 20130627
  Serious: Yes (Hospitalization, Other)
  Sender: FDA-Public Use
  Company Number: US-BAYER-2012-094558

PATIENT
  Age: 29 Year
  Weight: 113.38 kg

DRUGS (5)
  1. YAZ [Suspect]
     Dosage: UNK
     Dates: start: 20060701, end: 200610
  2. YASMIN [Suspect]
     Dosage: UNK
     Dates: start: 200607, end: 200609
  3. METOPROLOL TARTRATE [Concomitant]
     Dosage: 100 mg, UNK
     Dates: start: 20070601, end: 20071201
  4. METOPROLOL TARTRATE [Concomitant]
     Dosage: 50 mg, UNK
     Dates: start: 20070829, end: 20071218
  5. LISINOPRIL [Concomitant]
     Dosage: UNK
     Dates: start: 20070220, end: 20070820

REACTIONS (12)
  - Pulmonary embolism [None]
  - Abortion spontaneous [None]
  - Thrombosis [None]
  - Pain [None]
  - Injury [None]
  - General physical health deterioration [None]
  - Emotional distress [None]
  - Anxiety [None]
  - Anhedonia [None]
  - Pain [None]
  - Fear of death [None]
  - Fear [None]
